FAERS Safety Report 9024584 (Version 1)
Quarter: 2013Q1

REPORT INFORMATION
  Report Type: Spontaneous
  Country: FR (occurrence: None)
  Receive Date: 20130103
  Receipt Date: 20130103
  Transmission Date: 20140127
  Serious: Yes (Hospitalization)
  Sender: FDA-Public Use
  Company Number: DSA_61602_2012

PATIENT
  Age: 49 Year
  Sex: Female

DRUGS (2)
  1. FLAGYL [Suspect]
     Dates: start: 201108, end: 201108
  2. ESPERAL [Suspect]
     Route: 048
     Dates: start: 2010, end: 20110913

REACTIONS (3)
  - Acute polyneuropathy [None]
  - Serology positive [None]
  - Hepatitis C [None]
